FAERS Safety Report 15994579 (Version 1)
Quarter: 2019Q1

REPORT INFORMATION
  Report Type: Report from Study
  Country: BR (occurrence: BR)
  Receive Date: 20190222
  Receipt Date: 20190222
  Transmission Date: 20190418
  Serious: Yes (Other)
  Sender: FDA-Public Use
  Company Number: BR-B.I. PHARMACEUTICALS,INC./RIDGEFIELD-2018-BI-028102

PATIENT
  Age: 60 Year
  Sex: Female
  Weight: 46 kg

DRUGS (11)
  1. GILOTRIF [Suspect]
     Active Substance: AFATINIB
     Indication: NON-SMALL CELL LUNG CANCER
     Route: 048
     Dates: start: 20180419
  2. GILOTRIF [Suspect]
     Active Substance: AFATINIB
     Route: 048
  3. GILOTRIF [Suspect]
     Active Substance: AFATINIB
     Route: 048
     Dates: start: 201812
  4. AAS [Concomitant]
     Active Substance: ASPIRIN
     Indication: ARTERIOSCLEROSIS
  5. VALDOXAN [Concomitant]
     Active Substance: AGOMELATINE
     Indication: ANTIDEPRESSANT THERAPY
     Route: 048
  6. METOPROLOL. [Concomitant]
     Active Substance: METOPROLOL
     Indication: SINUS ARRHYTHMIA
     Route: 048
  7. CLORIDRATO DE PAROXETINA [Concomitant]
     Route: 048
  8. GILOTRIF [Suspect]
     Active Substance: AFATINIB
     Route: 048
     Dates: start: 201804
  9. CLORIDRATO DE PAROXETINA [Concomitant]
     Indication: DEPRESSION
     Route: 048
  10. AAS [Concomitant]
     Active Substance: ASPIRIN
     Indication: AORTIC ANEURYSM
     Route: 065
  11. RIVOTRIL [Concomitant]
     Active Substance: CLONAZEPAM
     Indication: ANTIDEPRESSANT THERAPY
     Route: 048

REACTIONS (17)
  - Dry skin [Not Recovered/Not Resolved]
  - Mucous membrane disorder [Recovered/Resolved]
  - Dizziness [Not Recovered/Not Resolved]
  - Diarrhoea [Recovered/Resolved]
  - Labyrinthitis [Not Recovered/Not Resolved]
  - Dizziness [Not Recovered/Not Resolved]
  - Aphthous ulcer [Not Recovered/Not Resolved]
  - Vaginal erosion [Recovered/Resolved]
  - Anal injury [Recovered/Resolved]
  - Diarrhoea [Not Recovered/Not Resolved]
  - Mucous membrane disorder [Recovered/Resolved]
  - Limb reduction defect [Not Recovered/Not Resolved]
  - Aphthous ulcer [Recovered/Resolved]
  - Nasal injury [Not Recovered/Not Resolved]
  - Head injury [Not Recovered/Not Resolved]
  - Limb discomfort [Not Recovered/Not Resolved]
  - Skin atrophy [Not Recovered/Not Resolved]

NARRATIVE: CASE EVENT DATE: 201804
